FAERS Safety Report 9766477 (Version 1)
Quarter: 2013Q4

REPORT INFORMATION
  Report Type: Spontaneous
  Country: US (occurrence: US)
  Receive Date: 20131217
  Receipt Date: 20131217
  Transmission Date: 20140711
  Serious: No
  Sender: FDA-Public Use
  Company Number: US-BIOGENIDEC-2013BI118006

PATIENT
  Age: 23 Year
  Sex: Female

DRUGS (1)
  1. TECFIDERA [Suspect]
     Indication: MULTIPLE SCLEROSIS
     Dates: start: 2013

REACTIONS (4)
  - Optic neuritis [Recovered/Resolved]
  - Hypoaesthesia [Recovered/Resolved]
  - Nuclear magnetic resonance imaging abnormal [Unknown]
  - Multiple sclerosis relapse [Recovered/Resolved]
